FAERS Safety Report 15623727 (Version 1)
Quarter: 2018Q4

REPORT INFORMATION
  Report Type: Spontaneous
  Country: US (occurrence: US)
  Receive Date: 20181115
  Receipt Date: 20181115
  Transmission Date: 20190205
  Serious: No
  Sender: FDA-Public Use
  Company Number: None

PATIENT
  Age: 38 Year
  Sex: Female
  Weight: 74.84 kg

DRUGS (7)
  1. KYLEENA [Concomitant]
     Active Substance: LEVONORGESTREL
  2. BUPROPION. [Concomitant]
     Active Substance: BUPROPION
  3. LEVOTHYROXINE. [Concomitant]
     Active Substance: LEVOTHYROXINE
  4. LISINOPRIL. [Concomitant]
     Active Substance: LISINOPRIL
  5. VITAMIN D3 [Concomitant]
     Active Substance: CHOLECALCIFEROL
  6. ZINC. [Concomitant]
     Active Substance: ZINC
  7. MIRENA [Suspect]
     Active Substance: LEVONORGESTREL
     Dates: start: 20140529, end: 20180608

REACTIONS (3)
  - Uterine perforation [None]
  - Uterine hypoplasia [None]
  - Complication associated with device [None]

NARRATIVE: CASE EVENT DATE: 20180608
